FAERS Safety Report 4429709-0 (Version None)
Quarter: 2004Q3

REPORT INFORMATION
  Report Type: 
  Country: None (occurrence: None)
  Receive Date: 20040820
  Receipt Date: 20040811
  Transmission Date: 20050211
  Serious: Yes (Hospitalization)
  Sender: FDA-Public Use
  Company Number: GB-JNJFOC-20040803052

PATIENT
  Sex: Male

DRUGS (11)
  1. REMICADE [Suspect]
     Indication: RHEUMATOID ARTHRITIS
     Route: 042
  2. PREDNISOLONE [Concomitant]
     Route: 065
  3. ACETAMINOPHEN [Concomitant]
  4. DF 118 [Concomitant]
  5. WARFARIN SODIUM [Concomitant]
     Route: 065
  6. METHOTREXATE [Concomitant]
     Route: 065
  7. FOLIC ACID [Concomitant]
  8. CALCICHEW [Concomitant]
  9. LANSOPRAZOLE [Concomitant]
  10. FLUOXETINE [Concomitant]
  11. FOSAMAX [Concomitant]

REACTIONS (2)
  - DYSPNOEA [None]
  - RIB FRACTURE [None]
